FAERS Safety Report 7314699-3 (Version None)
Quarter: 2011Q1

REPORT INFORMATION
  Report Type: 
  Country: None (occurrence: None)
  Receive Date: 20110225
  Receipt Date: 20110203
  Transmission Date: 20110831
  Serious: No
  Sender: FDA-Public Use
  Company Number: US-MYLANLABS-2010S1020875

PATIENT
  Age: 18 Year
  Sex: Female
  Weight: 62.6 kg

DRUGS (2)
  1. ORAL CONTRACEPTIVE NOS [Concomitant]
     Route: 048
  2. AMNESTEEM [Suspect]
     Route: 048
     Dates: start: 20100720, end: 20101001

REACTIONS (3)
  - FATIGUE [None]
  - CHAPPED LIPS [None]
  - LIP DRY [None]
